FAERS Safety Report 9411939 (Version 3)
Quarter: 2013Q4

REPORT INFORMATION
  Report Type: Report from Study
  Country: CA (occurrence: CA)
  Receive Date: 20130722
  Receipt Date: 20131129
  Transmission Date: 20140711
  Serious: Yes (Other)
  Sender: FDA-Public Use
  Company Number: PHHY2013CA077305

PATIENT
  Sex: Female

DRUGS (3)
  1. ACLASTA [Suspect]
     Indication: OSTEOPOROSIS
     Dosage: UNK
     Route: 042
     Dates: start: 20101101
  2. ACLASTA [Suspect]
     Dosage: UNK
     Route: 042
     Dates: start: 20111007
  3. ACLASTA [Suspect]
     Dosage: UNK
     Route: 042
     Dates: start: 20121012

REACTIONS (2)
  - Foot fracture [Unknown]
  - Osteoporosis [Unknown]
